FAERS Safety Report 4734288-4 (Version None)
Quarter: 2005Q3

REPORT INFORMATION
  Report Type: 
  Country: None (occurrence: None)
  Receive Date: 20050729
  Receipt Date: 20050711
  Transmission Date: 20060218
  Serious: Yes (Hospitalization, Other)
  Sender: FDA-Public Use
  Company Number: USA041286095

PATIENT
  Age: 78 Year
  Sex: Female
  Weight: 74 kg

DRUGS (7)
  1. FORTEO [Suspect]
     Dosage: 20 UG/1 DAY
     Dates: start: 20031201
  2. ARICEPT [Concomitant]
  3. NAMENDA [Concomitant]
  4. CELEBREX [Concomitant]
  5. VITAMIN E [Concomitant]
  6. COUMADIN [Concomitant]
  7. ASCORBIC ACID [Concomitant]

REACTIONS (7)
  - ASTHENIA [None]
  - FATIGUE [None]
  - HYPERSOMNIA [None]
  - IRRITABILITY [None]
  - LOSS OF CONSCIOUSNESS [None]
  - PHARMACEUTICAL PRODUCT COMPLAINT [None]
  - SLEEP DISORDER [None]
